FAERS Safety Report 23591276 (Version 1)
Quarter: 2024Q1

REPORT INFORMATION
  Report Type: Spontaneous
  Country: GB (occurrence: GB)
  Receive Date: 20240304
  Receipt Date: 20240304
  Transmission Date: 20240410
  Serious: Yes (Death)
  Sender: FDA-Public Use
  Company Number: GB-CHIESI-2024CHF01117

PATIENT
  Sex: Female

DRUGS (1)
  1. CUROSURF [Suspect]
     Active Substance: PORACTANT ALFA
     Indication: Neonatal respiratory distress syndrome
     Dosage: 350 MILLIGRAM/KILOGRAM
     Route: 007

REACTIONS (3)
  - Death [Fatal]
  - Prescribed overdose [Fatal]
  - Off label use [Recovered/Resolved]
